FAERS Safety Report 6179194-6 (Version None)
Quarter: 2009Q2

REPORT INFORMATION
  Report Type: 
  Country: None (occurrence: None)
  Receive Date: 20090505
  Receipt Date: 20090428
  Transmission Date: 20091009
  Serious: Yes (Other)
  Sender: FDA-Public Use
  Company Number: US-BAYER-200918055NA

PATIENT
  Age: 28 Year
  Sex: Female
  Weight: 67 kg

DRUGS (2)
  1. MIRENA [Suspect]
     Indication: CONTRACEPTION
     Dosage: CONTINUOUS
     Route: 015
     Dates: start: 20090216, end: 20090403
  2. METHYLDOPA [Concomitant]
     Indication: HYPERTENSION
     Dosage: 250 MG
     Dates: start: 20060101

REACTIONS (1)
  - UTERINE RUPTURE [None]
